FAERS Safety Report 9229531 (Version 1)
Quarter: 2013Q2

REPORT INFORMATION
  Report Type: Spontaneous
  Country: JP (occurrence: JP)
  Receive Date: 20130413
  Receipt Date: 20130413
  Transmission Date: 20140414
  Serious: Yes (Other)
  Sender: FDA-Public Use
  Company Number: JP-TEVA-398169USA

PATIENT
  Age: 60 Year
  Sex: Male

DRUGS (6)
  1. TREANDA [Suspect]
     Indication: MANTLE CELL LYMPHOMA
     Route: 042
     Dates: start: 20110606, end: 20110607
  2. TREANDA [Suspect]
     Route: 042
     Dates: start: 20110627, end: 20110628
  3. TREANDA [Suspect]
     Route: 042
     Dates: start: 20110719, end: 20110720
  4. TREANDA [Suspect]
     Route: 042
     Dates: start: 20110808, end: 20110809
  5. TREANDA [Suspect]
     Route: 042
     Dates: start: 20110829, end: 20110830
  6. TREANDA [Suspect]
     Route: 042
     Dates: start: 20110920, end: 20110921

REACTIONS (2)
  - Vasculitis [Recovered/Resolved]
  - Leukopenia [Recovered/Resolved]
